FAERS Safety Report 4361860-6 (Version None)
Quarter: 2004Q2

REPORT INFORMATION
  Report Type: 
  Country: None (occurrence: None)
  Receive Date: 20040521
  Receipt Date: 20040325
  Transmission Date: 20050107
  Serious: No
  Sender: FDA-Public Use
  Company Number: US-GLAXOSMITHKLINE-A0504572A

PATIENT
  Age: 72 Year
  Sex: Male

DRUGS (2)
  1. WELLBUTRIN XL [Suspect]
     Indication: DEPRESSION
     Dosage: 300MG PER DAY
     Route: 048
     Dates: start: 20040301
  2. XANAX [Concomitant]

REACTIONS (3)
  - ANOREXIA [None]
  - INSOMNIA [None]
  - NAUSEA [None]
